FAERS Safety Report 19993706 (Version 1)
Quarter: 2021Q4

REPORT INFORMATION
  Report Type: Spontaneous
  Country: GB (occurrence: GB)
  Receive Date: 20211026
  Receipt Date: 20211026
  Transmission Date: 20220303
  Serious: Yes (Other)
  Sender: FDA-Public Use
  Company Number: None

PATIENT
  Age: 92 Year
  Sex: Male
  Weight: 69 kg

DRUGS (21)
  1. FLUOROURACIL [Suspect]
     Active Substance: FLUOROURACIL
     Indication: Product used for unknown indication
     Dosage: LAST DOSE RECEIVED 05-OCT-2021
     Dates: start: 20211004
  2. AMLODIPINE [Concomitant]
     Active Substance: AMLODIPINE BESYLATE
     Dates: start: 20210112
  3. AZELAIC ACID [Concomitant]
     Active Substance: AZELAIC ACID
     Dates: start: 20210721, end: 20210818
  4. BETAMETHASONE VALERATE [Concomitant]
     Active Substance: BETAMETHASONE VALERATE
     Dosage: APPLY TWICE DAILY FOR 2 WEEKS TO AFFECTED AREA ...
     Dates: start: 20210909, end: 20210916
  5. TIOTROPIUM BROMIDE [Concomitant]
     Active Substance: TIOTROPIUM BROMIDE
     Route: 055
     Dates: start: 20210930
  6. CLOBETASONE BUTYRATE [Concomitant]
     Active Substance: CLOBETASONE BUTYRATE
     Dosage: FOR 7-14 DAYS.
     Dates: start: 20210804, end: 20210818
  7. COSMOCOL [Concomitant]
     Dosage: TAKE 1-4 DAILY
     Dates: start: 20210810
  8. DICLOFENAC SODIUM [Concomitant]
     Active Substance: DICLOFENAC SODIUM
     Indication: Actinic keratosis
     Dates: start: 20210721, end: 20210818
  9. FLUOROURACIL [Concomitant]
     Active Substance: FLUOROURACIL
     Dosage: FOR 4 WEEKS.
     Dates: start: 20210930
  10. ESOMEPRAZOLE SODIUM [Concomitant]
     Active Substance: ESOMEPRAZOLE SODIUM
     Dates: start: 20210114
  11. FINASTERIDE [Concomitant]
     Active Substance: FINASTERIDE
     Dosage: NIGHTLY.
     Dates: start: 20190916
  12. NITROGLYCERIN [Concomitant]
     Active Substance: NITROGLYCERIN
     Dosage: ONE PUFF AS NEEDED UNDER THE TONGUE. DO NOT USE...
     Dates: start: 20201224
  13. BUTYLSCOPOLAMINE BROMIDE [Concomitant]
     Active Substance: BUTYLSCOPOLAMINE BROMIDE
     Dates: start: 20210816, end: 20210823
  14. POLYETHYLENE GLYCOL 3350\POTASSIUM CHLORIDE\SODIUM BICARBONATE\SODIUM [Concomitant]
     Active Substance: POLYETHYLENE GLYCOL 3350\POTASSIUM CHLORIDE\SODIUM BICARBONATE\SODIUM CHLORIDE
     Indication: Constipation
     Dosage: TAKE UP TO THREE SACHETS DAILY.
     Dates: start: 20210115, end: 20210917
  15. NYSTATIN [Concomitant]
     Active Substance: NYSTATIN
     Dates: start: 20210721, end: 20210728
  16. ACETAMINOPHEN [Concomitant]
     Active Substance: ACETAMINOPHEN
     Dosage: TAKE ONE OR TWO TABLETS FOUR TIMES A DAY WHEN R...
     Dates: start: 20210820
  17. M+A PHARMACHEM PARACETAMOL [Concomitant]
     Dosage: (PARACETAMOL) TAKE ONE OR TWO TABLETS FOUR TIME...
     Dates: start: 20210226, end: 20210820
  18. ACIDEX [Concomitant]
     Dosage: TAKE TWO TO FOUR X5ML SPOONFULS 4 TIMES/DAY AFT...
     Dates: start: 20180322
  19. ALBUTEROL [Concomitant]
     Active Substance: ALBUTEROL
     Dosage: INHALE 2 DOSES UP TO FOUR TIMES A DAY AS NEEDED
     Dates: start: 20180301
  20. SENNA [Concomitant]
     Active Substance: SENNA LEAF\SENNOSIDES\SENNOSIDES A AND B
     Dosage: NIGHTLY.
     Dates: start: 20210104
  21. MINERAL OIL\PARAFFIN [Concomitant]
     Active Substance: MINERAL OIL\PARAFFIN
     Dosage: APPLY TO DRY SKIN AS OFTEN AS NEEDED- USE PLENTY
     Dates: start: 20190528

REACTIONS (3)
  - Abdominal pain [Recovered/Resolved]
  - Diarrhoea [Recovered/Resolved]
  - Muscle spasms [Unknown]

NARRATIVE: CASE EVENT DATE: 20211004
